FAERS Safety Report 15373976 (Version 1)
Quarter: 2018Q3

REPORT INFORMATION
  Report Type: Spontaneous
  Country: US (occurrence: US)
  Receive Date: 20180905
  Receipt Date: 20180905
  Transmission Date: 20181010
  Serious: No
  Sender: FDA-Public Use
  Company Number: None

PATIENT
  Age: 86 Year
  Sex: Male

DRUGS (1)
  1. INLYTA [Suspect]
     Active Substance: AXITINIB
     Indication: RENAL CANCER RECURRENT
     Route: 048
     Dates: start: 20180727, end: 20180814

REACTIONS (1)
  - Mental status changes [None]

NARRATIVE: CASE EVENT DATE: 20180814
